FAERS Safety Report 8549680-X (Version None)
Quarter: 2012Q3

REPORT INFORMATION
  Report Type: 
  Country: None (occurrence: None)
  Receive Date: 20120730
  Receipt Date: 20120725
  Transmission Date: 20120928
  Serious: Yes (Other)
  Sender: FDA-Public Use
  Company Number: US-PFIZER INC-2012126243

PATIENT
  Sex: Male
  Weight: 82.993 kg

DRUGS (3)
  1. INSULIN [Suspect]
     Indication: TYPE 1 DIABETES MELLITUS
     Dosage: UNK
  2. LYRICA [Suspect]
     Indication: PERIPHERAL COLDNESS
     Dosage: 1 CAPSULE OF 50 MG IN MORNING AND 2 CAPSULES OF 50 MG AT NIGHT
     Route: 048
  3. KEPPRA [Suspect]
     Dosage: UNK

REACTIONS (3)
  - CONVULSION [None]
  - WEIGHT INCREASED [None]
  - SOMNOLENCE [None]
